FAERS Safety Report 15337316 (Version 1)
Quarter: 2018Q3

REPORT INFORMATION
  Report Type: Spontaneous
  Country: US (occurrence: US)
  Receive Date: 20180831
  Receipt Date: 20180831
  Transmission Date: 20181010
  Serious: No
  Sender: FDA-Public Use
  Company Number: US-ASTRAZENECA-2018SF07289

PATIENT
  Sex: Male
  Weight: 172.4 kg

DRUGS (2)
  1. WELLBUTRIN [Concomitant]
     Active Substance: BUPROPION HYDROCHLORIDE
     Indication: DEPRESSION
     Route: 048
  2. SEROQUEL [Suspect]
     Active Substance: QUETIAPINE FUMARATE
     Indication: BIPOLAR DISORDER
     Dosage: FREQUENCY IS DAILY AND THE DOSE IS POSSIBLY 150 MG
     Route: 048
     Dates: start: 201704, end: 201704

REACTIONS (3)
  - Abnormal behaviour [Unknown]
  - Drug dose omission [Unknown]
  - Facial paralysis [Unknown]
